FAERS Safety Report 4354876-7 (Version None)
Quarter: 2004Q2

REPORT INFORMATION
  Report Type: 
  Country: None (occurrence: None)
  Receive Date: 20040507
  Receipt Date: 20040427
  Transmission Date: 20050107
  Serious: Yes (Other)
  Sender: FDA-Public Use
  Company Number: PHHO2004IT06213

PATIENT
  Age: 46 Year
  Sex: Female

DRUGS (11)
  1. NEORAL [Suspect]
     Indication: BONE MARROW TRANSPLANT
     Dosage: NOT REPORTED
     Route: 065
     Dates: start: 20040330
  2. AMBISOME [Suspect]
     Dosage: NOT REPORTED
     Route: 065
     Dates: start: 20040401
  3. FOSCARNET [Suspect]
     Dosage: NOT REPORTED
     Route: 065
     Dates: start: 20040329
  4. DIURETICS [Concomitant]
  5. CHEMOTHERAPEUTICS,OTHER [Concomitant]
  6. MEROPENEM [Concomitant]
  7. ALIZAPRIDE [Concomitant]
  8. VANCOMYCIN [Concomitant]
  9. NIFEDIPINE [Concomitant]
  10. ALLOPURINOL TAB [Concomitant]
  11. FUROSEMIDE [Suspect]

REACTIONS (1)
  - HYPOKALAEMIA [None]
